FAERS Safety Report 8966666 (Version 1)
Quarter: 2012Q4

REPORT INFORMATION
  Report Type: 
  Country: AU (occurrence: AU)
  Receive Date: 20121217
  Receipt Date: 20121217
  Transmission Date: 20130627
  Serious: Yes (Other)
  Sender: FDA-Public Use
  Company Number: AU-ASTRAZENECA-2012SE92001

PATIENT
  Age: 81 Year
  Sex: Male

DRUGS (5)
  1. BRILINTA [Suspect]
     Route: 048
     Dates: start: 201208
  2. CARTIA [Concomitant]
  3. IMDUR [Concomitant]
  4. IKOREL [Concomitant]
  5. LIPITOR [Concomitant]

REACTIONS (5)
  - Retching [Recovered/Resolved]
  - Gait disturbance [Not Recovered/Not Resolved]
  - Muscular weakness [Not Recovered/Not Resolved]
  - Muscle spasms [Not Recovered/Not Resolved]
  - Feeling abnormal [Not Recovered/Not Resolved]
